FAERS Safety Report 19578100 (Version 1)
Quarter: 2021Q3

REPORT INFORMATION
  Report Type: Report from Study
  Country: US (occurrence: US)
  Receive Date: 20210719
  Receipt Date: 20210719
  Transmission Date: 20211014
  Serious: Yes (Hospitalization, Other)
  Sender: FDA-Public Use
  Company Number: US-MALLINCKRODT PHARMACEUTICALS-T202100298

PATIENT
  Age: 47 Year
  Sex: Female
  Weight: 131 kg

DRUGS (1)
  1. REPOSITORY CORTICOTROPIN INJECTION [Suspect]
     Active Substance: CORTICOTROPIN
     Indication: SARCOIDOSIS
     Dosage: 80 UNITS TWICE A WEEK
     Route: 058
     Dates: start: 20210110, end: 202103

REACTIONS (24)
  - Dyspnoea [Unknown]
  - Chronic obstructive pulmonary disease [Unknown]
  - Helicobacter infection [Not Recovered/Not Resolved]
  - Sleep apnoea syndrome [Unknown]
  - Gait disturbance [Unknown]
  - Thirst [Not Recovered/Not Resolved]
  - Muscle twitching [Not Recovered/Not Resolved]
  - Pneumonitis [Unknown]
  - Cholelithiasis [Not Recovered/Not Resolved]
  - Back pain [Unknown]
  - Blood glucose increased [Unknown]
  - Vomiting projectile [Unknown]
  - Hypophagia [Not Recovered/Not Resolved]
  - Dizziness [Not Recovered/Not Resolved]
  - Ulcer [Recovered/Resolved]
  - Product storage error [Unknown]
  - Weight decreased [Unknown]
  - Fluid retention [Not Recovered/Not Resolved]
  - Oedema [Not Recovered/Not Resolved]
  - Chromaturia [Unknown]
  - Arthralgia [Not Recovered/Not Resolved]
  - Product dose omission issue [Unknown]
  - Increased appetite [Not Recovered/Not Resolved]
  - Weight increased [Not Recovered/Not Resolved]

NARRATIVE: CASE EVENT DATE: 2021
